FAERS Safety Report 13523866 (Version 1)
Quarter: 2017Q2

REPORT INFORMATION
  Report Type: Spontaneous
  Country: US (occurrence: US)
  Receive Date: 20170508
  Receipt Date: 20170508
  Transmission Date: 20170830
  Serious: No
  Sender: FDA-Public Use
  Company Number: US-VIFOR (INTERNATIONAL) INC.-VIT-2017-04431

PATIENT
  Sex: Female

DRUGS (14)
  1. ESTRACE [Concomitant]
     Active Substance: ESTRADIOL
  2. MAGNESIUM [Concomitant]
     Active Substance: MAGNESIUM
  3. MYRBETRIQ [Concomitant]
     Active Substance: MIRABEGRON
  4. ACETYLSALICYLIC ACID [Concomitant]
     Active Substance: ASPIRIN
  5. METFORMIN [Concomitant]
     Active Substance: METFORMIN HYDROCHLORIDE
  6. COLECALCIFEROL [Concomitant]
     Active Substance: CHOLECALCIFEROL
  7. BRILINTA [Concomitant]
     Active Substance: TICAGRELOR
  8. ALLOPURINOL. [Concomitant]
     Active Substance: ALLOPURINOL
  9. ESCITALOPRAM [Concomitant]
     Active Substance: ESCITALOPRAM OXALATE
  10. LOSARTAN. [Concomitant]
     Active Substance: LOSARTAN
  11. SIMVASTATIN. [Concomitant]
     Active Substance: SIMVASTATIN
  12. VELTASSA [Suspect]
     Active Substance: PATIROMER
     Indication: HYPERKALAEMIA
     Dosage: 1 PACKET
     Route: 048
     Dates: start: 20170228
  13. COREG [Concomitant]
     Active Substance: CARVEDILOL
  14. FLOMAX [Concomitant]
     Active Substance: TAMSULOSIN HYDROCHLORIDE

REACTIONS (1)
  - Diarrhoea [Not Recovered/Not Resolved]

NARRATIVE: CASE EVENT DATE: 2017
